FAERS Safety Report 4560116-6 (Version None)
Quarter: 2005Q1

REPORT INFORMATION
  Report Type: 
  Country: None (occurrence: None)
  Receive Date: 20050120
  Receipt Date: 20050120
  Transmission Date: 20050727
  Serious: Yes (Disabling)
  Sender: FDA-Public Use
  Company Number: None

PATIENT
  Age: 40 Year
  Sex: Female
  Weight: 99.3377 kg

DRUGS (4)
  1. CARBAMAZEPINE [Suspect]
     Indication: AGGRESSION
     Dosage: 200  TID
     Dates: start: 20040907, end: 20040907
  2. CARBAMAZEPINE [Suspect]
     Indication: CONVULSION
     Dosage: 200  TID
     Dates: start: 20040907, end: 20040907
  3. BUSPAR [Concomitant]
  4. XANAX [Concomitant]

REACTIONS (2)
  - AGITATION [None]
  - SELF INJURIOUS BEHAVIOUR [None]
